FAERS Safety Report 5366399-7 (Version None)
Quarter: 2007Q2

REPORT INFORMATION
  Report Type: 
  Country: None (occurrence: None)
  Receive Date: 20070622
  Receipt Date: 20070614
  Transmission Date: 20071010
  Serious: Yes (Hospitalization)
  Sender: FDA-Public Use
  Company Number: PHEH2007US04922

PATIENT
  Age: 16 Year
  Sex: Male

DRUGS (4)
  1. ZELNORM [Suspect]
     Indication: GASTROINTESTINAL MOTILITY DISORDER
     Dosage: 6 MG, QD
     Route: 048
     Dates: start: 20040301, end: 20070501
  2. NEXIUM [Concomitant]
  3. GENOTROPIN [Concomitant]
  4. ULTRAM [Concomitant]

REACTIONS (4)
  - ABDOMINAL DISTENSION [None]
  - ABDOMINAL PAIN [None]
  - CHOLECYSTECTOMY [None]
  - CONSTIPATION [None]
